FAERS Safety Report 10239415 (Version 1)
Quarter: 2014Q2

REPORT INFORMATION
  Report Type: Other
  Country: FR (occurrence: FR)
  Receive Date: 20140616
  Receipt Date: 20140616
  Transmission Date: 20141212
  Serious: Yes (Hospitalization)
  Sender: FDA-Public Use
  Company Number: FR-CUBIST PHARMACEUTICAL, INC.-2014CBST000838

PATIENT
  Sex: 0

DRUGS (15)
  1. CUBICIN [Suspect]
     Indication: SEPSIS
     Dosage: 500 MG, QD
     Route: 042
     Dates: start: 20140207, end: 20140227
  2. CUBICIN [Suspect]
     Indication: DEVICE RELATED INFECTION
  3. CUBICIN [Suspect]
     Indication: OFF LABEL USE
  4. CLINDAMYCINE KABI [Suspect]
     Indication: SEPSIS
     Dosage: 1 DF (600/4) MG/ML, TID
     Route: 042
     Dates: start: 20140207, end: 20140227
  5. CLINDAMYCINE KABI [Suspect]
     Indication: DEVICE RELATED INFECTION
  6. INVANZ [Suspect]
     Indication: PROSTATITIS
     Dosage: 1 G, QD
     Route: 042
     Dates: start: 20140212, end: 20140228
  7. INVANZ [Suspect]
     Indication: ENTEROBACTER INFECTION
  8. SMECTA                             /00837601/ [Concomitant]
     Indication: PRODUCT USED FOR UNKNOWN INDICATION
     Dosage: UNK UNK, UNK
     Route: 065
     Dates: start: 201402
  9. MAG 2                              /00799801/ [Concomitant]
     Indication: PRODUCT USED FOR UNKNOWN INDICATION
     Dosage: UNK UNK, UNK
     Route: 065
     Dates: start: 201402
  10. KARDEGIC [Concomitant]
     Indication: PRODUCT USED FOR UNKNOWN INDICATION
     Dosage: UNK UNK, UNK
     Route: 065
     Dates: start: 20131112
  11. FUROSEMIDE [Concomitant]
     Indication: PRODUCT USED FOR UNKNOWN INDICATION
     Dosage: UNK, UNK
     Route: 065
     Dates: start: 20131112
  12. NICARDIPINE [Concomitant]
     Indication: PRODUCT USED FOR UNKNOWN INDICATION
     Dosage: UNK UNK, UNK
     Route: 065
     Dates: start: 20131112
  13. TAMSULOSINE ACTAVIS [Concomitant]
     Indication: PRODUCT USED FOR UNKNOWN INDICATION
     Dosage: UNK UNK, UNK
     Route: 065
     Dates: start: 20131112
  14. RACECADOTRIL [Concomitant]
     Indication: PRODUCT USED FOR UNKNOWN INDICATION
     Dosage: UNK UNK, UNK
     Route: 065
     Dates: start: 20131112
  15. RAMIPRIL [Concomitant]
     Indication: PRODUCT USED FOR UNKNOWN INDICATION
     Dosage: UNK UNK, UNK
     Route: 065
     Dates: start: 20131112

REACTIONS (1)
  - Dermatitis exfoliative [Recovered/Resolved]
